FAERS Safety Report 7388154-9 (Version None)
Quarter: 2011Q2

REPORT INFORMATION
  Report Type: 
  Country: None (occurrence: None)
  Receive Date: 20110401
  Receipt Date: 20101001
  Transmission Date: 20111010
  Serious: Yes (Other)
  Sender: FDA-Public Use
  Company Number: US-BAYER-200943379NA

PATIENT
  Sex: Female
  Weight: 65.909 kg

DRUGS (3)
  1. POLY-IRON [POLYSACCHARIDE-IRON COMPLEX] [Concomitant]
  2. YASMIN [Suspect]
     Indication: CONTRACEPTION
     Route: 048
     Dates: start: 20050512, end: 20051202
  3. NEXIUM [Concomitant]
     Dosage: 40 MG, UNK
     Route: 048

REACTIONS (3)
  - OEDEMA PERIPHERAL [None]
  - DEEP VEIN THROMBOSIS [None]
  - PAIN IN EXTREMITY [None]
